FAERS Safety Report 9495770 (Version 2)
Quarter: 2013Q4

REPORT INFORMATION
  Report Type: Spontaneous
  Country: US (occurrence: US)
  Receive Date: 20130903
  Receipt Date: 20131205
  Transmission Date: 20140711
  Serious: Yes (Other)
  Sender: FDA-Public Use
  Company Number: US-PERRIGO-13US008783

PATIENT
  Age: 17 Year
  Sex: Female
  Weight: 94.33 kg

DRUGS (6)
  1. IBUPROFEN 200 MG 604 [Suspect]
     Indication: MIGRAINE
     Dosage: 800 MG, SINGLE
     Route: 048
     Dates: start: 20130820, end: 20130820
  2. IBUPROFEN 200 MG 604 [Suspect]
     Indication: PYREXIA
     Dosage: 200 MG, PRN
     Route: 048
     Dates: end: 2009
  3. IBUPROFEN 200 MG 604 [Suspect]
     Indication: MUSCULOSKELETAL DISCOMFORT
     Dosage: 400-800 MG
     Route: 048
     Dates: start: 2009
  4. IBUPROFEN 200 MG 604 [Suspect]
     Indication: HEADACHE
     Dosage: UNK
     Route: 048
     Dates: start: 20130819, end: 20130819
  5. MENINGOCOCCAL VACCINE [Suspect]
     Indication: IMMUNISATION
     Dosage: SINGLE
     Route: 065
     Dates: start: 20130819, end: 20130819
  6. BENADRYL [Concomitant]
     Indication: OEDEMA PERIPHERAL
     Dosage: UNK
     Route: 048
     Dates: start: 20130819, end: 20130820

REACTIONS (6)
  - Hypersensitivity [Recovered/Resolved]
  - Dyspnoea [Recovered/Resolved]
  - Pharyngeal oedema [Recovered/Resolved]
  - Vomiting [Recovered/Resolved]
  - Incorrect dose administered [Unknown]
  - Off label use [None]
